FAERS Safety Report 21446031 (Version 1)
Quarter: 2022Q4

REPORT INFORMATION
  Report Type: Report from Study
  Country: US (occurrence: US)
  Receive Date: 20221012
  Receipt Date: 20221012
  Transmission Date: 20230113
  Serious: No
  Sender: FDA-Public Use
  Company Number: US-ABBVIE-4151596

PATIENT
  Sex: Male

DRUGS (1)
  1. SKYRIZI [Suspect]
     Active Substance: RISANKIZUMAB-RZAA
     Indication: Acne
     Dosage: FORM STRENGTH: 150
     Route: 058

REACTIONS (2)
  - Off label use [Unknown]
  - Device use error [Not Recovered/Not Resolved]
